FAERS Safety Report 5215273-5 (Version None)
Quarter: 2007Q1

REPORT INFORMATION
  Report Type: 
  Country: None (occurrence: None)
  Receive Date: 20061122
  Receipt Date: 20060615
  Transmission Date: 20070707
  Serious: Yes (Other)
  Sender: FDA-Public Use
  Company Number: HQWYE265819JUN06

PATIENT
  Sex: Female
  Weight: 93.07 kg

DRUGS (1)
  1. PREMARIN [Suspect]
     Indication: ATROPHIC VULVOVAGINITIS
     Dosage: UNK, DOSE ONCE A WEEK; TOPICAL
     Route: 061
     Dates: start: 19960101, end: 20060301

REACTIONS (1)
  - ENDOMETRIAL CANCER [None]
